FAERS Safety Report 4284350-8 (Version None)
Quarter: 2004Q1

REPORT INFORMATION
  Report Type: 
  Country: None (occurrence: None)
  Receive Date: 20040130
  Receipt Date: 20040130
  Transmission Date: 20041129
  Serious: Yes (Hospitalization)
  Sender: FDA-Public Use
  Company Number: None

PATIENT
  Age: 74 Year
  Sex: Male
  Weight: 77.5651 kg

DRUGS (6)
  1. SIMVASTATIN [Suspect]
     Indication: HYPERLIPIDAEMIA
     Dosage: 1 PO QD
     Route: 048
  2. KETOCONAZOLE [Suspect]
     Dosage: 2 PO TID
     Route: 048
  3. FOSINOPRIL SODIUM [Concomitant]
  4. METOPROLOL [Concomitant]
  5. QUETIAPINE [Concomitant]
  6. RABEPRAZOLE SODIUM [Concomitant]

REACTIONS (6)
  - ABDOMINAL PAIN [None]
  - ASTHENIA [None]
  - BACK PAIN [None]
  - BLOOD CREATINE PHOSPHOKINASE INCREASED [None]
  - DYSPNOEA [None]
  - HEADACHE [None]
